FAERS Safety Report 6735579-8 (Version None)
Quarter: 2010Q2

REPORT INFORMATION
  Report Type: 
  Country: None (occurrence: None)
  Receive Date: 20100521
  Receipt Date: 20100514
  Transmission Date: 20101027
  Serious: Yes (Hospitalization)
  Sender: FDA-Public Use
  Company Number: US-ASTRAZENECA-2010SE22111

PATIENT
  Sex: Male

DRUGS (4)
  1. PULMICORT RESPULES [Suspect]
     Indication: ASTHMA
     Route: 055
     Dates: start: 20080101
  2. PULMICORT RESPULES [Suspect]
     Route: 055
     Dates: start: 20100501
  3. SINGULAIR [Concomitant]
  4. ALBUTEROL [Concomitant]

REACTIONS (7)
  - ADENOIDAL DISORDER [None]
  - COUGH [None]
  - DEAFNESS [None]
  - EAR INFECTION [None]
  - RHINORRHOEA [None]
  - SALIVARY HYPERSECRETION [None]
  - WHEEZING [None]
